FAERS Safety Report 8216189-2 (Version None)
Quarter: 2012Q1

REPORT INFORMATION
  Report Type: 
  Country: None (occurrence: None)
  Receive Date: 20120316
  Receipt Date: 20120306
  Transmission Date: 20120608
  Serious: Yes (Other)
  Sender: FDA-Public Use
  Company Number: US-GLAXOSMITHKLINE-A0969883A

PATIENT
  Sex: Male

DRUGS (2)
  1. DOXYCYCLINE [Suspect]
     Indication: LYME DISEASE
     Route: 065
  2. CEFTIN [Suspect]
     Indication: LYME DISEASE
     Route: 065

REACTIONS (2)
  - PHOTOSENSITIVITY REACTION [None]
  - HEPATITIS [None]
